FAERS Safety Report 9600440 (Version 1)
Quarter: 2013Q4

REPORT INFORMATION
  Report Type: Spontaneous
  Country: US (occurrence: US)
  Receive Date: 20131004
  Receipt Date: 20131004
  Transmission Date: 20140711
  Serious: No
  Sender: FDA-Public Use
  Company Number: US-AMGEN-USASP2013034951

PATIENT
  Age: 49 Year
  Sex: Female
  Weight: 113 kg

DRUGS (19)
  1. ENBREL [Suspect]
     Indication: PRODUCT USED FOR UNKNOWN INDICATION
     Dosage: 50 MG, ONCE A WEEK
     Route: 058
  2. CYMBALTA [Concomitant]
     Dosage: 20 MG, UNK
  3. REQUIP [Concomitant]
     Dosage: 5 MG, UNK
  4. NEURONTIN [Concomitant]
     Dosage: 100 MG, UNK
  5. METOPROLOL TARTRATE [Concomitant]
     Dosage: 50 MG, UNK
  6. ALBUTEROL                          /00139501/ [Concomitant]
     Dosage: 90 MUG, UNK
  7. LEVOTHYROXIN [Concomitant]
     Dosage: 75 MUG, UNK
  8. PERCOCET                           /00446701/ [Concomitant]
     Dosage: 5- 325 MG, UNK
  9. EXCEDRIN                           /00110301/ [Concomitant]
     Dosage: UNK
  10. PROAIR HFA [Concomitant]
     Dosage: UNK
  11. OMEGA-3                            /01866101/ [Concomitant]
     Dosage: UNK
  12. CLA [Concomitant]
     Dosage: UNK
  13. OXYCONTIN [Concomitant]
     Dosage: 10 MG CR, UNK
  14. CALCIUM +D                         /00944201/ [Concomitant]
     Dosage: UNK
  15. TYLENOL ARTHRITIS [Concomitant]
     Dosage: 650 MG, UNK
  16. MAGNESIUM [Concomitant]
     Dosage: 300 MG, UNK
  17. VITAMIN B12                        /00056201/ [Concomitant]
     Dosage: 100 MUG, UNK
  18. DUEXIS [Concomitant]
     Dosage: 800 - 26.6,UNK, UNK
  19. PROBIOTIC                          /06395501/ [Concomitant]
     Dosage: UNK

REACTIONS (1)
  - Arthralgia [Unknown]
